FAERS Safety Report 13125055 (Version 1)
Quarter: 2017Q1

REPORT INFORMATION
  Report Type: Spontaneous
  Country: US (occurrence: US)
  Receive Date: 20170117
  Receipt Date: 20170117
  Transmission Date: 20170428
  Serious: No
  Sender: FDA-Public Use
  Company Number: None

PATIENT
  Age: 79 Year
  Sex: Male

DRUGS (1)
  1. TAFINLAR [Suspect]
     Active Substance: DABRAFENIB MESYLATE
     Indication: THYROID CANCER

REACTIONS (6)
  - Pyrexia [None]
  - Diarrhoea [None]
  - Dehydration [None]
  - Confusional state [None]
  - Lethargy [None]
  - Urinary tract infection [None]

NARRATIVE: CASE EVENT DATE: 20161219
